FAERS Safety Report 5121038-5 (Version None)
Quarter: 2006Q4

REPORT INFORMATION
  Report Type: 
  Country: None (occurrence: None)
  Receive Date: 20061005
  Receipt Date: 20060810
  Transmission Date: 20070319
  Serious: Yes (Hospitalization)
  Sender: FDA-Public Use
  Company Number: US-PURDUE-USA_2006_0024893

PATIENT
  Age: 68 Year
  Sex: Male
  Weight: 109 kg

DRUGS (5)
  1. MS CONTIN [Suspect]
     Indication: PAIN
     Dosage: UNK MG, UNK
     Dates: start: 20010101
  2. MS CONTIN [Suspect]
     Dosage: 100 MG, TID
  3. BACLOFEN [Suspect]
     Indication: DRUG USE FOR UNKNOWN INDICATION
  4. GLYBURIDE [Suspect]
     Indication: DRUG USE FOR UNKNOWN INDICATION
  5. COLACE CAPSULES [Concomitant]
     Indication: CONSTIPATION
     Dosage: UNK, UNK

REACTIONS (5)
  - CONSTIPATION [None]
  - DIAGNOSTIC PROCEDURE [None]
  - DRUG EFFECT DECREASED [None]
  - DRUG TOLERANCE [None]
  - PAIN [None]
